FAERS Safety Report 6838604-9 (Version None)
Quarter: 2010Q3

REPORT INFORMATION
  Report Type: 
  Country: None (occurrence: None)
  Receive Date: 20100713
  Receipt Date: 20070616
  Transmission Date: 20110219
  Serious: No
  Sender: FDA-Public Use
  Company Number: US-PFIZER INC-2007050482

PATIENT
  Sex: Female
  Weight: 61.7 kg

DRUGS (7)
  1. CHANTIX [Suspect]
     Indication: SMOKING CESSATION THERAPY
     Dates: start: 20070613
  2. LAMICTAL [Concomitant]
     Indication: BIPOLAR DISORDER
  3. PROTONIX [Concomitant]
  4. ALPRAZOLAM [Concomitant]
  5. TRIAZOLAM [Concomitant]
  6. SALBUTAMOL [Concomitant]
  7. ALBUTEROL [Concomitant]
     Route: 055

REACTIONS (2)
  - DIZZINESS [None]
  - TOBACCO USER [None]
